FAERS Safety Report 7270199-0 (Version None)
Quarter: 2011Q1

REPORT INFORMATION
  Report Type: 
  Country: None (occurrence: None)
  Receive Date: 20110125
  Receipt Date: 20110108
  Transmission Date: 20110831
  Serious: Yes (Life-Threatening)
  Sender: FDA-Public Use
  Company Number: PPC201100005

PATIENT
  Sex: Female

DRUGS (2)
  1. MAGNESIUM SULFATE [Suspect]
     Indication: ECLAMPSIA
     Dosage: 2 GM, INTRAVENOUS
     Route: 042
  2. MAGNESIUM SULFATE [Suspect]
     Indication: ECLAMPSIA
     Dosage: 4 GM, 4G IM IN EACH BUTTOCK, INTRAMUSCULAR ; 4 GM, 1 IN 4 HR, NITRAMUSCULAR
     Route: 030

REACTIONS (2)
  - DRUG EXPOSURE DURING PREGNANCY [None]
  - DISSEMINATED INTRAVASCULAR COAGULATION [None]
